FAERS Safety Report 6456127-6 (Version None)
Quarter: 2009Q4

REPORT INFORMATION
  Report Type: 
  Country: None (occurrence: None)
  Receive Date: 20091125
  Receipt Date: 20090324
  Transmission Date: 20100525
  Serious: No
  Sender: FDA-Public Use
  Company Number: US-BAYER-200917294NA

PATIENT
  Sex: Female

DRUGS (4)
  1. BETASERON [Suspect]
     Indication: ACCIDENTAL EXPOSURE
     Route: 061
     Dates: start: 20090321, end: 20090321
  2. BETASERON [Suspect]
     Route: 061
     Dates: start: 20090323, end: 20090323
  3. BENADRYL [Concomitant]
     Route: 065
     Dates: start: 20090324, end: 20090324
  4. ZINC [Concomitant]
     Indication: NASOPHARYNGITIS
     Route: 065
     Dates: start: 20090320

REACTIONS (1)
  - URTICARIA [None]
